FAERS Safety Report 9612995 (Version 1)
Quarter: 2013Q4

REPORT INFORMATION
  Report Type: Spontaneous
  Country: DE (occurrence: DE)
  Receive Date: 20131010
  Receipt Date: 20131010
  Transmission Date: 20140711
  Serious: Yes (Congenital Anomaly)
  Sender: FDA-Public Use
  Company Number: DE-TEVA-436249GER

PATIENT
  Age: 1 Day
  Sex: Female

DRUGS (5)
  1. METOPROLOL [Suspect]
     Route: 064
  2. SEROQUEL [Suspect]
     Route: 064
  3. VALPROINSAEURE [Concomitant]
     Route: 064
  4. FOLSAEURE [Concomitant]
     Route: 064
  5. INSULIN [Concomitant]

REACTIONS (1)
  - Genital labial adhesions [Unknown]
